FAERS Safety Report 8162577-2 (Version None)
Quarter: 2012Q1

REPORT INFORMATION
  Report Type: 
  Country: None (occurrence: None)
  Receive Date: 20120224
  Receipt Date: 20120215
  Transmission Date: 20120608
  Serious: Yes (Other)
  Sender: FDA-Public Use
  Company Number: US-BAYER-2012-006059

PATIENT
  Age: 30 Year
  Sex: Female

DRUGS (1)
  1. MIRENA [Suspect]
     Indication: CONTRACEPTION
     Dosage: 20 MCG/24HR, CONT
     Route: 015
     Dates: start: 20110408, end: 20120117

REACTIONS (4)
  - UTERINE PERFORATION [None]
  - UTERINE SPASM [None]
  - GENITAL HAEMORRHAGE [None]
  - ABDOMINAL PAIN [None]
